FAERS Safety Report 4837132-X (Version None)
Quarter: 2005Q4

REPORT INFORMATION
  Report Type: 
  Country: None (occurrence: None)
  Receive Date: 20051122
  Receipt Date: 20051111
  Transmission Date: 20060501
  Serious: Yes (Hospitalization, Other)
  Sender: FDA-Public Use
  Company Number: 2005155541

PATIENT
  Age: 78 Year
  Sex: Male

DRUGS (4)
  1. LIPITOR [Suspect]
     Indication: BLOOD CHOLESTEROL INCREASED
     Dosage: 20 MG (20 MG,1 IN 1 D), UNKNOWN
     Route: 065
  2. DIURETICS (DIURETICS) [Concomitant]
  3. METOPROLOL TARTRATE [Concomitant]
  4. ASPIRIN [Concomitant]

REACTIONS (6)
  - ARTHRITIS [None]
  - BLADDER DISORDER [None]
  - FLATULENCE [None]
  - MUSCLE SPASMS [None]
  - RENAL DISORDER [None]
  - WEIGHT INCREASED [None]
